FAERS Safety Report 5766328-8 (Version None)
Quarter: 2008Q2

REPORT INFORMATION
  Report Type: 
  Country: None (occurrence: None)
  Receive Date: 20080605
  Receipt Date: 20080521
  Transmission Date: 20081010
  Serious: Yes (Hospitalization)
  Sender: FDA-Public Use
  Company Number: 2008S1006275

PATIENT
  Age: 72 Year
  Sex: Male

DRUGS (5)
  1. PHENYTOIN [Suspect]
     Indication: EPILEPSY
     Dosage: 200 MG; TWICE A DAY
  2. OMEPRAZOLE [Suspect]
     Indication: DRUG USE FOR UNKNOWN INDICATION
  3. PERINDOPRIL [Concomitant]
  4. INDAPAMIDE [Concomitant]
  5. PHENYTOIN [Concomitant]

REACTIONS (9)
  - BALANCE DISORDER [None]
  - CEREBELLAR SYNDROME [None]
  - CEREBROVASCULAR ACCIDENT [None]
  - CEREBROVASCULAR DISORDER [None]
  - CONVULSION [None]
  - COORDINATION ABNORMAL [None]
  - DRUG TOXICITY [None]
  - FALL [None]
  - TREMOR [None]
